FAERS Safety Report 24657806 (Version 1)
Quarter: 2024Q4

REPORT INFORMATION
  Report Type: Spontaneous
  Country: SK (occurrence: SK)
  Receive Date: 20241125
  Receipt Date: 20241125
  Transmission Date: 20250114
  Serious: Yes (Other)
  Sender: TAKEDA
  Company Number: SK-TAKEDA-2024TUS116025

PATIENT
  Age: 27 Year
  Sex: Female

DRUGS (6)
  1. ENTYVIO [Suspect]
     Active Substance: VEDOLIZUMAB
     Indication: Colitis ulcerative
     Dosage: UNK
  2. ENTYVIO [Suspect]
     Active Substance: VEDOLIZUMAB
     Dosage: UNK
  3. ENTYVIO [Suspect]
     Active Substance: VEDOLIZUMAB
     Indication: Colitis ulcerative
     Dosage: 108 MILLIGRAM
  4. ENTYVIO [Suspect]
     Active Substance: VEDOLIZUMAB
  5. PENTASA [Concomitant]
     Active Substance: MESALAMINE
     Dosage: 1 GRAM
  6. Cortiment [Concomitant]
     Dosage: 9 MILLIGRAM

REACTIONS (4)
  - Colitis ulcerative [Unknown]
  - Skin swelling [Unknown]
  - Pain of skin [Unknown]
  - Pruritus [Unknown]
